FAERS Safety Report 8375745-1 (Version None)
Quarter: 2012Q2

REPORT INFORMATION
  Report Type: 
  Country: None (occurrence: None)
  Receive Date: 20120518
  Receipt Date: 20120518
  Transmission Date: 20120825
  Serious: Yes (Death, Hospitalization)
  Sender: FDA-Public Use
  Company Number: None

PATIENT
  Sex: Female
  Weight: 68.4 kg

DRUGS (2)
  1. CISPLATIN [Suspect]
     Dosage: 532 MG
     Dates: end: 20111025
  2. TAXOTERE [Suspect]
     Dosage: 532 MG
     Dates: end: 20111025

REACTIONS (15)
  - PRODUCTIVE COUGH [None]
  - RESPIRATORY FAILURE [None]
  - HYPONATRAEMIA [None]
  - DEHYDRATION [None]
  - ASTHENIA [None]
  - PULMONARY FIBROSIS [None]
  - WHITE BLOOD CELL COUNT DECREASED [None]
  - NEUTROPENIA [None]
  - FLUID OVERLOAD [None]
  - BLOOD CALCIUM DECREASED [None]
  - BLOOD CREATININE INCREASED [None]
  - PNEUMONITIS [None]
  - PLEURAL EFFUSION [None]
  - HYPOTENSION [None]
  - HYPOKALAEMIA [None]
